FAERS Safety Report 23859717 (Version 1)
Quarter: 2024Q2

REPORT INFORMATION
  Report Type: Spontaneous
  Country: US (occurrence: US)
  Receive Date: 20240515
  Receipt Date: 20240515
  Transmission Date: 20240716
  Serious: No
  Sender: FDA-Public Use
  Company Number: US-SANDOZ-SDZ2024US048327

PATIENT
  Age: 49 Year
  Sex: Female

DRUGS (1)
  1. VIVELLE-DOT [Suspect]
     Active Substance: ESTRADIOL
     Indication: Hysterectomy
     Dosage: 0.1 MG
     Route: 062

REACTIONS (4)
  - Product adhesion issue [Unknown]
  - Affective disorder [Unknown]
  - Hot flush [Unknown]
  - Drug ineffective [Unknown]
